FAERS Safety Report 11990089 (Version 1)
Quarter: 2016Q1

REPORT INFORMATION
  Report Type: Spontaneous
  Country: US (occurrence: US)
  Receive Date: 20160202
  Receipt Date: 20160202
  Transmission Date: 20160526
  Serious: Yes (Other)
  Sender: FDA-Public Use
  Company Number: US-ROCHE-1646667

PATIENT
  Sex: Female
  Weight: 95 kg

DRUGS (5)
  1. TOPAMAX [Suspect]
     Active Substance: TOPIRAMATE
     Indication: MIGRAINE
     Dosage: 2 TABLETS AT NIGHT
     Route: 065
     Dates: start: 20150917, end: 20150928
  2. BENADRYL [Suspect]
     Active Substance: DIPHENHYDRAMINE HYDROCHLORIDE
     Indication: MIGRAINE
     Route: 065
  3. TORADOL [Suspect]
     Active Substance: KETOROLAC TROMETHAMINE
     Indication: MIGRAINE
     Route: 065
  4. MAXALT [Suspect]
     Active Substance: RIZATRIPTAN BENZOATE
     Indication: MIGRAINE
     Route: 065
     Dates: start: 20150928
  5. IMITREX [Suspect]
     Active Substance: SUMATRIPTAN SUCCINATE
     Indication: MIGRAINE
     Route: 065

REACTIONS (2)
  - Drug ineffective [Unknown]
  - No adverse event [Unknown]
